FAERS Safety Report 20829341 (Version 4)
Quarter: 2023Q1

REPORT INFORMATION
  Report Type: Spontaneous
  Country: US (occurrence: US)
  Receive Date: 20220513
  Receipt Date: 20230301
  Transmission Date: 20230417
  Serious: No
  Sender: FDA-Public Use
  Company Number: US-PFIZER INC-202200440712

PATIENT
  Age: 19 Year
  Sex: Female

DRUGS (1)
  1. XELJANZ [Suspect]
     Active Substance: TOFACITINIB CITRATE
     Indication: Rheumatoid arthritis
     Dosage: 5 MG, 2X/DAY
     Route: 048
     Dates: start: 202203

REACTIONS (5)
  - COVID-19 [Unknown]
  - Depression [Recovered/Resolved]
  - Feeling of despair [Recovered/Resolved]
  - Malaise [Unknown]
  - Product dose omission in error [Unknown]
